FAERS Safety Report 8085355-1 (Version None)
Quarter: 2012Q1

REPORT INFORMATION
  Report Type: 
  Country: None (occurrence: None)
  Receive Date: 20120128
  Receipt Date: 20110509
  Transmission Date: 20120608
  Serious: No
  Sender: FDA-Public Use
  Company Number: US-ABBOTT-09P-163-0611550-00

PATIENT
  Sex: Male
  Weight: 90.346 kg

DRUGS (4)
  1. HUMIRA [Suspect]
     Indication: CROHN'S DISEASE
     Dates: start: 20080401
  2. AMLODIPINE [Concomitant]
     Indication: HYPERTENSION
  3. BENADRYL [Concomitant]
     Indication: HYPERSENSITIVITY
  4. BENICAR [Concomitant]
     Indication: PRODUCT USED FOR UNKNOWN INDICATION

REACTIONS (2)
  - LEUKOCYTOSIS [None]
  - WHITE BLOOD CELL COUNT INCREASED [None]
